FAERS Safety Report 22346805 (Version 1)
Quarter: 2023Q2

REPORT INFORMATION
  Report Type: Spontaneous
  Country: BR (occurrence: BR)
  Receive Date: 20230520
  Receipt Date: 20230520
  Transmission Date: 20230722
  Serious: Yes (Other)
  Sender: FDA-Public Use
  Company Number: BR-002147023-NVSC2023BR114671

PATIENT
  Sex: Female
  Weight: 53 kg

DRUGS (2)
  1. TRAVATAN [Suspect]
     Active Substance: TRAVOPROST
     Indication: Glaucoma
     Dosage: 1 DRP, QD (1 DROP IN EACH EYE) (MANY YEARS AGO/ MORE THAN 15 YEARS AGO)
  2. BRINZOLAMIDE [Suspect]
     Active Substance: BRINZOLAMIDE
     Indication: Glaucoma
     Dosage: 1 DRP, BID (1 DROP IN EACH EYE) (STARTED: MANY YEARS AGO)

REACTIONS (7)
  - Accident [Recovered/Resolved with Sequelae]
  - Labyrinthitis [Not Recovered/Not Resolved]
  - Varicose vein [Not Recovered/Not Resolved]
  - Cholelithiasis [Recovered/Resolved]
  - Liver disorder [Not Recovered/Not Resolved]
  - Thyroid disorder [Not Recovered/Not Resolved]
  - Diarrhoea [Not Recovered/Not Resolved]

NARRATIVE: CASE EVENT DATE: 20220101
